FAERS Safety Report 5813329-7 (Version None)
Quarter: 2008Q3

REPORT INFORMATION
  Report Type: 
  Country: None (occurrence: None)
  Receive Date: 20080717
  Receipt Date: 20080714
  Transmission Date: 20090109
  Serious: Yes (Life-Threatening)
  Sender: FDA-Public Use
  Company Number: GB-BRISTOL-MYERS SQUIBB COMPANY-14263537

PATIENT
  Age: 66 Year
  Sex: Male
  Weight: 74 kg

DRUGS (8)
  1. DASATINIB [Suspect]
     Indication: CHRONIC MYELOID LEUKAEMIA
     Route: 048
     Dates: start: 20070101, end: 20070101
  2. AMITRIPTYLINE HCL [Concomitant]
     Indication: PAIN
     Route: 048
  3. ATENOLOL [Concomitant]
     Indication: ARRHYTHMIA
     Route: 048
  4. CARBAMAZEPINE [Concomitant]
     Indication: PAIN
     Route: 048
     Dates: end: 20070121
  5. IMATINIB MESILATE [Concomitant]
     Indication: CHRONIC MYELOID LEUKAEMIA
     Route: 048
     Dates: end: 20070120
  6. MS CONTIN [Concomitant]
     Indication: PAIN
     Route: 048
  7. ORAMORPH SR [Concomitant]
     Indication: PAIN
     Route: 048
  8. WARFARIN SODIUM [Concomitant]
     Indication: ATRIAL FIBRILLATION
     Route: 048

REACTIONS (1)
  - STEVENS-JOHNSON SYNDROME [None]
